FAERS Safety Report 14362486 (Version 5)
Quarter: 2019Q2

REPORT INFORMATION
  Report Type: Report from Study
  Country: IT (occurrence: IT)
  Receive Date: 20180108
  Receipt Date: 20190619
  Transmission Date: 20190711
  Serious: Yes (Other)
  Sender: FDA-Public Use
  Company Number: IT-ROCHE-2048824

PATIENT
  Age: 49 Year
  Sex: Female
  Weight: 80 kg

DRUGS (6)
  1. LEVOLAC [Concomitant]
     Active Substance: LACTULOSE
     Indication: CONSTIPATION
     Route: 065
     Dates: start: 20171222
  2. VEMURAFENIB. [Suspect]
     Active Substance: VEMURAFENIB
     Indication: MALIGNANT MELANOMA
     Dosage: DATE OF MOST RECENT DOSE OF STUDY DRUG PRIOR TO EVENT ONSET: 29/DEC/2017. TOTAL NUMBER OF TABLETS RE
     Route: 048
     Dates: start: 20171201
  3. CIPROXIN [CIPROFLOXACIN] [Concomitant]
     Indication: CYSTITIS
     Route: 065
     Dates: start: 20171215, end: 20171222
  4. COBIMETINIB. [Suspect]
     Active Substance: COBIMETINIB
     Indication: MALIGNANT MELANOMA
     Dosage: DATE OF MOST RECENT DOSE OF STUDY DRUG PRIOR TO EVENT ONSET: 22/DEC/2017
     Route: 048
     Dates: start: 20171201
  5. PARACETAMOLO [Concomitant]
     Active Substance: ACETAMINOPHEN
     Indication: PYREXIA
     Route: 048
     Dates: start: 20171213
  6. DELTACORTENE [Concomitant]
     Active Substance: PREDNISONE
     Indication: ERYTHEMA NODOSUM
     Route: 048
     Dates: start: 20171222

REACTIONS (1)
  - Lipase increased [Recovered/Resolved]

NARRATIVE: CASE EVENT DATE: 20171229
